FAERS Safety Report 4945867-3 (Version None)
Quarter: 2006Q1

REPORT INFORMATION
  Report Type: 
  Country: None (occurrence: None)
  Receive Date: 20060117
  Receipt Date: 20041213
  Transmission Date: 20060701
  Serious: Yes (Other)
  Sender: FDA-Public Use
  Company Number: A03200404223

PATIENT
  Sex: Female

DRUGS (3)
  1. PLAVIX [Suspect]
     Dosage: 75 MG QD  - ORAL
     Route: 048
  2. ISOSORBIDE [Concomitant]
  3. ASPIRIN [Concomitant]

REACTIONS (2)
  - HYPOTENSION [None]
  - TRANSIENT ISCHAEMIC ATTACK [None]
